FAERS Safety Report 25853629 (Version 1)
Quarter: 2025Q3

REPORT INFORMATION
  Report Type: Spontaneous
  Country: US (occurrence: None)
  Receive Date: 20250926
  Receipt Date: 20250926
  Transmission Date: 20251020
  Serious: Yes (Hospitalization)
  Sender: FDA-CTU
  Company Number: None

PATIENT
  Age: 77 Year
  Sex: Female
  Weight: 63 kg

DRUGS (7)
  1. AMLODIPINE BESYLATE [Suspect]
     Active Substance: AMLODIPINE BESYLATE
     Indication: Hypertension
     Dosage: 1 TABLET DAILY ORAL
     Route: 048
     Dates: start: 20250903, end: 20250916
  2. Nifedipine er Blood pressure cuff [Concomitant]
  3. HERBALS [Concomitant]
     Active Substance: HERBALS
  4. VITAMIN C [Concomitant]
     Active Substance: ASCORBIC ACID
  5. VITAMIN D [Concomitant]
     Active Substance: VITAMIN D NOS
  6. VITAMIN E [Concomitant]
     Active Substance: .ALPHA.-TOCOPHEROL
  7. zinv [Concomitant]

REACTIONS (2)
  - Blood pressure increased [None]
  - Heart rate decreased [None]

NARRATIVE: CASE EVENT DATE: 20250915
